FAERS Safety Report 6334714-3 (Version None)
Quarter: 2009Q3

REPORT INFORMATION
  Report Type: 
  Country: None (occurrence: None)
  Receive Date: 20090831
  Receipt Date: 20090820
  Transmission Date: 20100115
  Serious: Yes (Other)
  Sender: FDA-Public Use
  Company Number: US-ELI_LILLY_AND_COMPANY-US200908004774

PATIENT
  Sex: Female

DRUGS (5)
  1. FORTEO [Suspect]
     Indication: OSTEOPOROSIS
     Dosage: 20 UG, DAILY (1/D)
     Route: 058
     Dates: start: 20090201
  2. FORTEO [Suspect]
     Dosage: 20 UG, DAILY (1/D)
     Route: 058
     Dates: start: 20090801
  3. ASPIRIN [Concomitant]
     Dosage: 81 MG, DAILY (1/D)
  4. SYNTHROID [Concomitant]
     Indication: THYROID DISORDER
     Dosage: 0.88 UG, DAILY (1/D)
  5. DAILY VITAMINS [Concomitant]

REACTIONS (1)
  - MALIGNANT MELANOMA [None]
